FAERS Safety Report 9640051 (Version 2)
Quarter: 2013Q4

REPORT INFORMATION
  Report Type: Report from Study
  Country: KE (occurrence: KE)
  Receive Date: 20131023
  Receipt Date: 20131023
  Transmission Date: 20140711
  Serious: Yes (Other)
  Sender: FDA-Public Use
  Company Number: PHHY2012KE026189

PATIENT
  Sex: Male

DRUGS (2)
  1. GLIVEC [Suspect]
     Indication: CHRONIC MYELOID LEUKAEMIA
     Dosage: 400 MG, DAILY
     Dates: start: 20090831
  2. GLIVEC [Suspect]
     Dosage: 600 MG, DAILY
     Dates: start: 20120321

REACTIONS (3)
  - Splenomegaly [Unknown]
  - White blood cell count increased [Unknown]
  - Asthenia [Unknown]
